FAERS Safety Report 16912309 (Version 1)
Quarter: 2019Q4

REPORT INFORMATION
  Report Type: Spontaneous
  Country: IT (occurrence: IT)
  Receive Date: 20191014
  Receipt Date: 20191014
  Transmission Date: 20200122
  Serious: Yes (Life-Threatening)
  Sender: FDA-Public Use
  Company Number: IT-SUN PHARMACEUTICAL INDUSTRIES LTD-2019RR-223544

PATIENT
  Sex: Male

DRUGS (2)
  1. CLARITHROMYCIN. [Suspect]
     Active Substance: CLARITHROMYCIN
     Indication: DERMATOSIS
     Dosage: 500 MILLIGRAM, DAILY
     Route: 048
     Dates: start: 20190902, end: 20190907
  2. BENTELAN 1 MG COMPRESSE EFFERVESCENTI [Concomitant]
     Indication: PRODUCT USED FOR UNKNOWN INDICATION
     Dosage: ()
     Route: 065

REACTIONS (1)
  - Hepatitis fulminant [Unknown]

NARRATIVE: CASE EVENT DATE: 20190908
